FAERS Safety Report 17217840 (Version 1)
Quarter: 2019Q4

REPORT INFORMATION
  Report Type: Spontaneous
  Country: SE (occurrence: SE)
  Receive Date: 20191231
  Receipt Date: 20191231
  Transmission Date: 20200122
  Serious: Yes (Hospitalization)
  Sender: FDA-Public Use
  Company Number: SE-TEVA-2019-SE-1159679

PATIENT
  Age: 26 Year
  Sex: Female

DRUGS (7)
  1. VOXRA [Suspect]
     Active Substance: BUPROPION HYDROCHLORIDE
     Dosage: 1200 MILLIGRAM
     Route: 048
     Dates: start: 20190308, end: 20190308
  2. ARIPIPRAZOLE (ANHYDROUS) [Suspect]
     Active Substance: ARIPIPRAZOLE
     Dosage: 70 MILLIGRAM
     Route: 048
     Dates: start: 20190308, end: 20190308
  3. PROPAVAN [Suspect]
     Active Substance: PROPIOMAZINE
     Route: 048
     Dates: start: 20190308, end: 20190308
  4. PROPAVAN [Suspect]
     Active Substance: PROPIOMAZINE
     Dosage: 30ST
     Route: 048
     Dates: start: 20190307, end: 20190307
  5. SUMATRIPTAN. [Suspect]
     Active Substance: SUMATRIPTAN
     Dosage: 100 MILLIGRAM
     Route: 048
     Dates: start: 20190308, end: 20190308
  6. DICLOFENAC [Suspect]
     Active Substance: DICLOFENAC
     Dosage: 200 MILLIGRAM
     Route: 048
     Dates: start: 20190308, end: 20190308
  7. ZOPICLONE [Suspect]
     Active Substance: ZOPICLONE
     Dosage: 172.5 MILLIGRAM
     Route: 048
     Dates: start: 20190307, end: 20190307

REACTIONS (4)
  - Tachycardia [Unknown]
  - Depressed level of consciousness [Unknown]
  - Intentional overdose [Unknown]
  - Intentional self-injury [Unknown]

NARRATIVE: CASE EVENT DATE: 20190308
